FAERS Safety Report 6140157-8 (Version None)
Quarter: 2009Q1

REPORT INFORMATION
  Report Type: 
  Country: None (occurrence: None)
  Receive Date: 20090324
  Receipt Date: 20090325
  Transmission Date: 20090719
  Serious: Yes (Death)
  Sender: FDA-Public Use
  Company Number: 2009JP001758

PATIENT
  Sex: Female

DRUGS (1)
  1. FUNGUARD (MICAFUNGIN) INJECTION [Suspect]
     Dosage: 50 MG, IV DRIP
     Route: 041
     Dates: start: 20090301

REACTIONS (1)
  - DEATH [None]
